FAERS Safety Report 6049324-5 (Version None)
Quarter: 2009Q1

REPORT INFORMATION
  Report Type: 
  Country: None (occurrence: None)
  Receive Date: 20090123
  Receipt Date: 20090115
  Transmission Date: 20090719
  Serious: Yes (Hospitalization)
  Sender: FDA-Public Use
  Company Number: US-B.I. PHARMACEUTICALS,INC./RIDGEFIELD-2008-BP-16150BP

PATIENT
  Age: 33 Year
  Sex: Male

DRUGS (7)
  1. VIRAMUNE [Suspect]
     Indication: HIV INFECTION
     Dosage: 400MG
     Dates: start: 20070101
  2. VIRAMUNE [Suspect]
     Indication: HERPES SIMPLEX
  3. VIRAMUNE [Suspect]
     Indication: ACQUIRED IMMUNODEFICIENCY SYNDROME
  4. VIRAMUNE [Suspect]
     Indication: HERPES SIMPLEX
  5. TENOFOVIR (TDV) [Concomitant]
     Indication: HERPES SIMPLEX
     Dates: start: 20070101
  6. EMTRICITABINE (FTC) [Concomitant]
     Indication: HERPES SIMPLEX
     Dates: start: 20070101
  7. TRUVADA [Concomitant]
     Dates: start: 20070101

REACTIONS (7)
  - CD4 LYMPHOCYTES ABNORMAL [None]
  - CD4 LYMPHOCYTES INCREASED [None]
  - DRUG RESISTANCE [None]
  - GENITAL HERPES [None]
  - HERPES SIMPLEX [None]
  - IMMUNE RECONSTITUTION SYNDROME [None]
  - VIRAL LOAD INCREASED [None]
